FAERS Safety Report 7430874-1 (Version None)
Quarter: 2011Q2

REPORT INFORMATION
  Report Type: 
  Country: None (occurrence: None)
  Receive Date: 20110421
  Receipt Date: 20110415
  Transmission Date: 20111010
  Serious: Yes (Death)
  Sender: FDA-Public Use
  Company Number: MX-BRISTOL-MYERS SQUIBB COMPANY-15682255

PATIENT
  Age: 81 Year
  Sex: Female

DRUGS (1)
  1. APROVEL TABS [Suspect]
     Indication: HYPERTENSION
     Dosage: APROVEL  TAB
     Route: 048
     Dates: end: 20110319

REACTIONS (1)
  - ACUTE MYOCARDIAL INFARCTION [None]
